FAERS Safety Report 8334668-4 (Version None)
Quarter: 2012Q2

REPORT INFORMATION
  Report Type: 
  Country: None (occurrence: None)
  Receive Date: 20120503
  Receipt Date: 20120424
  Transmission Date: 20120825
  Serious: No
  Sender: FDA-Public Use
  Company Number: US-JNJFOC-20120412663

PATIENT
  Sex: Male
  Weight: 72.58 kg

DRUGS (6)
  1. NEURONTIN [Concomitant]
     Indication: PAIN
     Route: 048
     Dates: start: 20100101
  2. LACTOSE [Concomitant]
     Indication: LIVER DISORDER
     Route: 048
  3. FENTANYL-100 [Suspect]
     Indication: PAIN
     Route: 062
     Dates: start: 20110101
  4. PRILOSEC [Concomitant]
     Indication: GASTRIC DISORDER
     Route: 048
  5. MULTI-VITAMINS [Concomitant]
     Indication: ROUTINE HEALTH MAINTENANCE
     Route: 048
  6. AMBIEN [Concomitant]
     Indication: SLEEP DISORDER
     Route: 048

REACTIONS (3)
  - LENTIGO [None]
  - WRONG TECHNIQUE IN DRUG USAGE PROCESS [None]
  - DRUG PRESCRIBING ERROR [None]
